FAERS Safety Report 19179378 (Version 8)
Quarter: 2021Q2

REPORT INFORMATION
  Report Type: Report from Study
  Country: US (occurrence: US)
  Receive Date: 20210426
  Receipt Date: 20210628
  Transmission Date: 20210717
  Serious: Yes (Death, Other)
  Sender: FDA-Public Use
  Company Number: US-GLAXOSMITHKLINE-US2021GSK058310

PATIENT
  Age: 58 Year
  Sex: Female
  Weight: 86.7 kg

DRUGS (9)
  1. PACLITAXEL. [Suspect]
     Active Substance: PACLITAXEL
     Indication: ENDOMETRIAL CANCER
     Dosage: 175 MG/M2
     Route: 042
     Dates: start: 20201015, end: 20201015
  2. PACLITAXEL. [Suspect]
     Active Substance: PACLITAXEL
     Dosage: 175 MG/M2
     Route: 042
     Dates: start: 20210128, end: 20210128
  3. METHYLPREDNISOLONE. [Concomitant]
     Active Substance: METHYLPREDNISOLONE
     Indication: IMMUNE SYSTEM DISORDER
     Dosage: 1 MG/KG
     Dates: start: 20210331
  4. DOSTARLIMAB [Suspect]
     Active Substance: DOSTARLIMAB
     Indication: ENDOMETRIAL CANCER
     Dosage: 500 MG
     Dates: start: 20201015, end: 20201015
  5. CARBOPLATIN (NON?GSK COMPARATOR) [Suspect]
     Active Substance: CARBOPLATIN
     Indication: ENDOMETRIAL CANCER
     Dosage: 5 AUC
     Route: 042
     Dates: start: 20201015, end: 20201015
  6. CEFEPIME [Concomitant]
     Active Substance: CEFEPIME HYDROCHLORIDE
     Indication: HYPOVOLAEMIC SHOCK
     Dosage: UNK
     Route: 042
     Dates: start: 20210331, end: 20210407
  7. CARBOPLATIN (NON?GSK COMPARATOR) [Suspect]
     Active Substance: CARBOPLATIN
     Dosage: 382 AUC
     Route: 042
     Dates: start: 20210128, end: 20210128
  8. VANCOMYCIN [Concomitant]
     Active Substance: VANCOMYCIN
     Indication: HYPOVOLAEMIC SHOCK
     Dosage: UNK
     Route: 042
     Dates: start: 20210331, end: 20210407
  9. DOSTARLIMAB [Suspect]
     Active Substance: DOSTARLIMAB
     Dosage: 1000 MG
     Dates: start: 20210218, end: 20210218

REACTIONS (4)
  - Syncope [Recovered/Resolved]
  - Sudden death [Fatal]
  - Sepsis [Recovered/Resolved with Sequelae]
  - Sepsis [Recovering/Resolving]

NARRATIVE: CASE EVENT DATE: 20210304
